FAERS Safety Report 6070921-5 (Version None)
Quarter: 2009Q1

REPORT INFORMATION
  Report Type: 
  Country: None (occurrence: None)
  Receive Date: 20090209
  Receipt Date: 20090126
  Transmission Date: 20090719
  Serious: Yes (Death, Hospitalization)
  Sender: FDA-Public Use
  Company Number: JP-ABBOTT-08P-087-0437836-00

PATIENT
  Age: 89 Year
  Sex: Male

DRUGS (14)
  1. LEUPROLIDE ACETATE [Suspect]
     Indication: PROSTATE CANCER STAGE IV
     Route: 058
     Dates: start: 20060811, end: 20071214
  2. CANDESARTAN CILEXETIL [Concomitant]
     Indication: HYPERTENSION
     Route: 048
     Dates: end: 20080117
  3. NAFTOPIDIL [Concomitant]
     Indication: BENIGN PROSTATIC HYPERPLASIA
     Route: 048
     Dates: end: 20071115
  4. NITRAZEPAM [Concomitant]
     Indication: INSOMNIA
     Route: 048
     Dates: end: 20080117
  5. WARFARIN POTASSIUM [Concomitant]
     Indication: THROMBOSIS
     Route: 048
     Dates: end: 20080117
  6. CASODEX [Concomitant]
     Indication: PROSTATE CANCER STAGE IV
     Route: 048
     Dates: start: 20070803, end: 20070913
  7. FLUTAMIDE [Concomitant]
     Indication: PROSTATE CANCER STAGE IV
     Route: 048
     Dates: start: 20070914, end: 20070930
  8. DECADRON [Concomitant]
     Indication: PROSTATE CANCER STAGE IV
     Route: 048
     Dates: start: 20071001, end: 20080117
  9. SELBEX [Concomitant]
     Indication: GASTRITIS
     Route: 048
     Dates: start: 20071005, end: 20080117
  10. OXYCONTIN [Concomitant]
     Indication: CANCER PAIN
     Route: 048
     Dates: start: 20071117, end: 20080108
  11. DUROTEP [Concomitant]
     Indication: CANCER PAIN
     Route: 062
     Dates: start: 20080109, end: 20080122
  12. NOVAMIN [Concomitant]
     Indication: VOMITING
     Route: 048
     Dates: start: 20071120, end: 20080117
  13. HARNAL [Concomitant]
     Indication: BENIGN PROSTATIC HYPERPLASIA
     Route: 048
     Dates: start: 20071116, end: 20080117
  14. FAMOTIDINE [Concomitant]
     Indication: GASTRITIS
     Route: 048
     Dates: start: 20071005, end: 20080117

REACTIONS (3)
  - MECHANICAL ILEUS [None]
  - MULTI-ORGAN FAILURE [None]
  - PROSTATE CANCER [None]
